FAERS Safety Report 8559509-1 (Version None)
Quarter: 2012Q2

REPORT INFORMATION
  Report Type: 
  Country: None (occurrence: None)
  Receive Date: 20120418
  Receipt Date: 20110413
  Transmission Date: 20120825
  Serious: Yes (Other)
  Sender: FDA-Public Use
  Company Number: PHHY2011US31401

PATIENT

DRUGS (2)
  1. EXFORGE [Suspect]
  2. DIOVAN HCT [Suspect]

REACTIONS (1)
  - BLOOD PRESSURE INCREASED [None]
